FAERS Safety Report 12390505 (Version 1)
Quarter: 2016Q2

REPORT INFORMATION
  Report Type: Spontaneous
  Country: GB (occurrence: GB)
  Receive Date: 20160520
  Receipt Date: 20160520
  Transmission Date: 20160815
  Serious: Yes (Disabling)
  Sender: FDA-Public Use
  Company Number: GB-JNJFOC-20160517306

PATIENT
  Age: 52 Year
  Sex: Female
  Weight: 66 kg

DRUGS (2)
  1. XARELTO [Suspect]
     Active Substance: RIVAROXABAN
     Indication: EMBOLISM VENOUS
     Route: 048
     Dates: start: 20160408, end: 20160429
  2. XARELTO [Suspect]
     Active Substance: RIVAROXABAN
     Indication: DEEP VEIN THROMBOSIS
     Route: 048
     Dates: start: 20160408, end: 20160429

REACTIONS (4)
  - Muscular weakness [Recovered/Resolved]
  - Paraesthesia [Recovered/Resolved]
  - Fatigue [Recovered/Resolved]
  - Musculoskeletal stiffness [Recovered/Resolved]

NARRATIVE: CASE EVENT DATE: 20160419
